FAERS Safety Report 13120964 (Version 1)
Quarter: 2017Q1

REPORT INFORMATION
  Report Type: Spontaneous
  Country: US (occurrence: US)
  Receive Date: 20170117
  Receipt Date: 20170117
  Transmission Date: 20170428
  Serious: Yes (Other)
  Sender: FDA-Public Use
  Company Number: US-LPDUSPRD-20170010

PATIENT
  Sex: Female

DRUGS (1)
  1. INJECTAFER [Suspect]
     Active Substance: FERRIC CARBOXYMALTOSE
     Dosage: 750MG,100ML NSS
     Route: 041
     Dates: start: 20161227, end: 20161227

REACTIONS (6)
  - Pruritus [Unknown]
  - Hyperhidrosis [Unknown]
  - Dyspnoea [Unknown]
  - Paraesthesia [Unknown]
  - Feeling hot [Unknown]
  - Hypertension [Unknown]

NARRATIVE: CASE EVENT DATE: 20161227
